FAERS Safety Report 5923053-8 (Version None)
Quarter: 2008Q4

REPORT INFORMATION
  Report Type: 
  Country: None (occurrence: None)
  Receive Date: 20081018
  Receipt Date: 20081006
  Transmission Date: 20090506
  Serious: Yes (Death, Hospitalization, Other)
  Sender: FDA-Public Use
  Company Number: SK-PFIZER INC-2008084079

PATIENT
  Age: 49 Year
  Sex: Male

DRUGS (3)
  1. CLINDAMYCIN HYDROCHLORIDE [Suspect]
     Dates: start: 20060201
  2. CIPROFLOXACIN [Suspect]
     Dates: start: 20060201
  3. AMOXICILLIN + CLAVULANATE POTASSIUM [Suspect]
     Dates: start: 20060201

REACTIONS (3)
  - EMPYEMA [None]
  - MULTI-ORGAN FAILURE [None]
  - SEPTIC SHOCK [None]
